FAERS Safety Report 4908668-8 (Version None)
Quarter: 2006Q1

REPORT INFORMATION
  Report Type: 
  Country: None (occurrence: None)
  Receive Date: 20060210
  Receipt Date: 20051011
  Transmission Date: 20060701
  Serious: No
  Sender: FDA-Public Use
  Company Number: US-GLAXOSMITHKLINE-A0577827A

PATIENT
  Sex: Female

DRUGS (3)
  1. PAXIL CR [Suspect]
     Indication: DIZZINESS
     Dosage: 12.5MG PER DAY
     Route: 048
     Dates: end: 20051006
  2. WELLBUTRIN XL [Suspect]
     Indication: DRUG USE FOR UNKNOWN INDICATION
     Dosage: 150MG PER DAY
     Route: 048
     Dates: start: 20051007
  3. NO CONCURRENT MEDICATION [Concomitant]

REACTIONS (5)
  - DRUG INEFFECTIVE [None]
  - DYSARTHRIA [None]
  - FEELING DRUNK [None]
  - HYPOACTIVE SEXUAL DESIRE DISORDER [None]
  - WEIGHT INCREASED [None]
